FAERS Safety Report 15488248 (Version 1)
Quarter: 2018Q4

REPORT INFORMATION
  Report Type: Spontaneous
  Country: US (occurrence: US)
  Receive Date: 20181011
  Receipt Date: 20181011
  Transmission Date: 20190205
  Serious: No
  Sender: FDA-Public Use
  Company Number: US-RISING PHARMACEUTICALS, INC.-2017RIS00052

PATIENT
  Sex: Female
  Weight: 72.56 kg

DRUGS (6)
  1. GAS-X [Concomitant]
     Active Substance: DIMETHICONE
  2. PROCTOZONE-HC [Suspect]
     Active Substance: HYDROCORTISONE
     Indication: HAEMORRHOIDS
     Dosage: UNK, 2X/DAY (SOMETIMES ONCE)
     Route: 061
     Dates: start: 201701
  3. PROCTOZONE-HC [Suspect]
     Active Substance: HYDROCORTISONE
     Dosage: UNK, 1X/DAY (SOMETIMES ONCE)
     Dates: start: 201701
  4. PEPTO-BISMOL [Suspect]
     Active Substance: BISMUTH SUBSALICYLATE
  5. COLACE [Concomitant]
     Active Substance: DOCUSATE SODIUM
  6. UNSPECIFIED EYE DROPS [Concomitant]
     Active Substance: UNSPECIFIED INGREDIENT

REACTIONS (1)
  - Faeces discoloured [Recovered/Resolved]
